FAERS Safety Report 10430448 (Version 1)
Quarter: 2014Q3

REPORT INFORMATION
  Report Type: Spontaneous
  Country: CH (occurrence: None)
  Receive Date: 20140903
  Receipt Date: 20140903
  Transmission Date: 20150326
  Serious: Yes (Hospitalization, Other)
  Sender: FDA-Public Use
  Company Number: 20140566

PATIENT
  Age: 1 Day
  Sex: Male

DRUGS (1)
  1. FERINJECT [Suspect]
     Active Substance: FERRIC CARBOXYMALTOSE
     Indication: PRODUCT USED FOR UNKNOWN INDICATION
     Route: 064
     Dates: start: 20131001

REACTIONS (4)
  - Vanishing twin syndrome [None]
  - Maternal drugs affecting foetus [None]
  - Caesarean section [None]
  - Neonatal respiratory distress syndrome [None]

NARRATIVE: CASE EVENT DATE: 20131001
